FAERS Safety Report 7815299-9 (Version None)
Quarter: 2011Q4

REPORT INFORMATION
  Report Type: 
  Country: None (occurrence: None)
  Receive Date: 20111014
  Receipt Date: 20111013
  Transmission Date: 20120403
  Serious: No
  Sender: FDA-Public Use
  Company Number: US-TEVA-304850USA

PATIENT
  Sex: Female

DRUGS (1)
  1. COPAXONE [Suspect]
     Indication: MULTIPLE SCLEROSIS
     Route: 058

REACTIONS (6)
  - INJECTION SITE PAIN [None]
  - ASTHENIA [None]
  - DEPRESSION [None]
  - PERSONALITY CHANGE [None]
  - LETHARGY [None]
  - IMPATIENCE [None]
